FAERS Safety Report 22325766 (Version 1)
Quarter: 2023Q2

REPORT INFORMATION
  Report Type: Spontaneous
  Country: US (occurrence: US)
  Receive Date: 20230516
  Receipt Date: 20230516
  Transmission Date: 20230722
  Serious: No
  Sender: FDA-Public Use
  Company Number: US-ANIPHARMA-2023-US-003938

PATIENT
  Age: 55 Year
  Sex: Female

DRUGS (2)
  1. CORTICOTROPIN [Suspect]
     Active Substance: CORTICOTROPIN
     Indication: Psoriatic arthropathy
     Dosage: INJECT 80 UNITS (1ML) SUBCUTANEOUSLY TWO TIMES A WEEK
     Route: 058
     Dates: start: 202301
  2. STELARA [Concomitant]
     Active Substance: USTEKINUMAB
     Route: 065

REACTIONS (1)
  - Injection site pain [Unknown]
